FAERS Safety Report 13377611 (Version 1)
Quarter: 2017Q1

REPORT INFORMATION
  Report Type: Spontaneous
  Country: JP (occurrence: JP)
  Receive Date: 20170328
  Receipt Date: 20170328
  Transmission Date: 20170429
  Serious: Yes (Other)
  Sender: FDA-Public Use
  Company Number: JP-PFIZER INC-2017126234

PATIENT
  Age: 77 Year
  Sex: Female

DRUGS (4)
  1. PROPOFOL. [Suspect]
     Active Substance: PROPOFOL
     Dosage: UNK
  2. DEXMEDETOMIDINE HYDROCHLORIDE. [Suspect]
     Active Substance: DEXMEDETOMIDINE HYDROCHLORIDE
     Dosage: UNK
  3. TICLOPIDINE [Concomitant]
     Active Substance: TICLOPIDINE
     Dosage: UNK
     Route: 048
  4. FENTANYL. [Suspect]
     Active Substance: FENTANYL
     Dosage: UNK

REACTIONS (1)
  - Altered state of consciousness [Recovered/Resolved]
